FAERS Safety Report 8459427-3 (Version None)
Quarter: 2012Q2

REPORT INFORMATION
  Report Type: 
  Country: None (occurrence: None)
  Receive Date: 20120622
  Receipt Date: 20120619
  Transmission Date: 20120825
  Serious: Yes (Other)
  Sender: FDA-Public Use
  Company Number: VE-PFIZER INC-2012125928

PATIENT
  Age: 75 Year
  Sex: Male

DRUGS (4)
  1. LIPITOR [Suspect]
     Dosage: 40 MG, 1X/DAY
     Route: 048
     Dates: start: 20110307
  2. AMARYL [Concomitant]
     Dosage: 2 MG, UNK
     Route: 048
  3. PLAVIX [Concomitant]
     Dosage: 75 MG, UNK
     Route: 048
  4. ALDACTONE [Concomitant]
     Dosage: 25 MG, UNK
     Route: 048

REACTIONS (1)
  - MYOCARDIAL INFARCTION [None]
